FAERS Safety Report 10539928 (Version 3)
Quarter: 2014Q4

REPORT INFORMATION
  Report Type: Spontaneous
  Country: JP (occurrence: JP)
  Receive Date: 20141024
  Receipt Date: 20141127
  Transmission Date: 20150529
  Serious: Yes (Other)
  Sender: FDA-Public Use
  Company Number: JP-ROCHE-1479071

PATIENT
  Age: 98 Year
  Sex: Female

DRUGS (4)
  1. LUCENTIS [Suspect]
     Active Substance: RANIBIZUMAB
     Indication: AGE-RELATED MACULAR DEGENERATION
     Route: 050
     Dates: start: 20131118
  2. CRAVIT [Concomitant]
     Active Substance: LEVOFLOXACIN
     Route: 065
  3. LUCENTIS [Suspect]
     Active Substance: RANIBIZUMAB
     Route: 050
     Dates: start: 20140901, end: 20140901
  4. LUCENTIS [Suspect]
     Active Substance: RANIBIZUMAB
     Route: 050
     Dates: start: 20131224

REACTIONS (2)
  - Macular detachment [Recovering/Resolving]
  - Angina pectoris [Recovered/Resolved]

NARRATIVE: CASE EVENT DATE: 20140901
